FAERS Safety Report 5262726-X (Version None)
Quarter: 2007Q1

REPORT INFORMATION
  Report Type: 
  Country: None (occurrence: None)
  Receive Date: 20070312
  Receipt Date: 20070228
  Transmission Date: 20070707
  Serious: Yes (Hospitalization)
  Sender: FDA-Public Use
  Company Number: 2006UW26136

PATIENT
  Age: 33 Year
  Sex: Male
  Weight: 88.6 kg

DRUGS (7)
  1. SEROQUEL [Suspect]
     Indication: DEPRESSION
     Route: 048
     Dates: start: 20060101
  2. SEROQUEL [Suspect]
     Route: 048
     Dates: start: 20060101
  3. GEODON [Concomitant]
     Dates: start: 20050101
  4. RISPERDAL [Concomitant]
     Dates: start: 20060101
  5. STELAZINE [Concomitant]
     Dates: start: 19900101
  6. ZYPREXA [Concomitant]
     Dates: start: 20040101
  7. LORAZEPAM [Concomitant]
     Dates: start: 20060101

REACTIONS (6)
  - BLOOD CHOLESTEROL INCREASED [None]
  - BLOOD TRIGLYCERIDES INCREASED [None]
  - DEPRESSION [None]
  - DIABETES MELLITUS [None]
  - POST-TRAUMATIC STRESS DISORDER [None]
  - SUICIDE ATTEMPT [None]
